FAERS Safety Report 7198468-3 (Version None)
Quarter: 2010Q4

REPORT INFORMATION
  Report Type: 
  Country: None (occurrence: None)
  Receive Date: 20101223
  Receipt Date: 20101223
  Transmission Date: 20110411
  Serious: Yes (Hospitalization)
  Sender: FDA-Public Use
  Company Number: None

PATIENT
  Sex: Female
  Weight: 39.5 kg

DRUGS (2)
  1. DABIGATRAN ETEXILATE 150MG CAPSULE BOEHRINGER INGELHEIM [Suspect]
     Indication: ATRIAL FIBRILLATION
     Dosage: 150MG TWICE DAILY PO
     Route: 048
     Dates: start: 20101203, end: 20101219
  2. ASPIRIN [Concomitant]

REACTIONS (3)
  - GASTROINTESTINAL HAEMORRHAGE [None]
  - HAEMOGLOBIN DECREASED [None]
  - PYLORIC STENOSIS [None]
